FAERS Safety Report 5313800-0 (Version None)
Quarter: 2007Q2

REPORT INFORMATION
  Report Type: 
  Country: None (occurrence: None)
  Receive Date: 20070501
  Receipt Date: 20070423
  Transmission Date: 20071010
  Serious: Yes (Hospitalization)
  Sender: FDA-Public Use
  Company Number: US-ROCHE-494128

PATIENT
  Age: 72 Year
  Sex: Male

DRUGS (3)
  1. NAPROSYN [Suspect]
     Indication: CYST
     Route: 048
     Dates: start: 20061001
  2. PLAVIX [Interacting]
     Indication: DRUG USE FOR UNKNOWN INDICATION
     Route: 065
  3. NIASPAN [Suspect]
     Indication: DRUG USE FOR UNKNOWN INDICATION
     Route: 065

REACTIONS (4)
  - DRUG INTERACTION [None]
  - EYE INFECTION STAPHYLOCOCCAL [None]
  - SKIN REACTION [None]
  - STAPHYLOCOCCAL INFECTION [None]
